FAERS Safety Report 18735567 (Version 1)
Quarter: 2021Q1

REPORT INFORMATION
  Report Type: Spontaneous
  Country: FR (occurrence: FR)
  Receive Date: 20210113
  Receipt Date: 20210113
  Transmission Date: 20210419
  Serious: Yes (Hospitalization)
  Sender: FDA-Public Use
  Company Number: FR-TEVA-2021-FR-1867790

PATIENT
  Age: 76 Year
  Sex: Male
  Weight: 77.8 kg

DRUGS (11)
  1. DIFFU K, GELULE [Concomitant]
     Active Substance: POTASSIUM CHLORIDE
     Dosage: 4 DOSAGE FORMS
     Route: 048
     Dates: start: 2014
  2. BISOPROLOL (FUMARATE DE) [Concomitant]
     Active Substance: BISOPROLOL FUMARATE
     Indication: ATRIAL FIBRILLATION
     Dosage: 2.5 MG
     Route: 048
     Dates: start: 2015
  3. OFLOXACINE [Suspect]
     Active Substance: OFLOXACIN
     Indication: URINARY TRACT INFECTION
     Dosage: 1 DOSAGE FORMS
     Route: 048
     Dates: start: 20201204, end: 20201211
  4. COUMADINE [Interacting]
     Active Substance: WARFARIN SODIUM
     Indication: ATRIAL FIBRILLATION
     Dosage: 2 MG
     Route: 048
     Dates: start: 20150219, end: 20201211
  5. ALPRAZOLAM. [Concomitant]
     Active Substance: ALPRAZOLAM
     Dosage: 0.25 MG
     Route: 048
     Dates: start: 2014
  6. UVEDOSE 100 000 UI, SOLUTION BUVABLE EN AMPOULE [Concomitant]
     Active Substance: CHOLECALCIFEROL
     Indication: VITAMIN D DEFICIENCY
     Dosage: 1 DOSAGE FORMS
     Route: 048
  7. FUROSEMIDE. [Concomitant]
     Active Substance: FUROSEMIDE
     Indication: HYPERTENSION
     Dosage: 20 MG
     Route: 048
     Dates: start: 2013
  8. BICARBONATE DE SODIUM [Concomitant]
     Active Substance: SODIUM BICARBONATE
     Dosage: 1500 MG
     Route: 048
  9. MYFORTIC [Concomitant]
     Active Substance: MYCOPHENOLATE SODIUM
     Indication: PROPHYLAXIS AGAINST TRANSPLANT REJECTION
     Dosage: 2 DOSAGE FORMS
     Route: 048
     Dates: start: 2014, end: 20201213
  10. PARACETAMOL [Concomitant]
     Active Substance: ACETAMINOPHEN
     Indication: PAIN
     Dosage: 1 DOSAGE FORMS
     Route: 048
  11. CICLOSPORINE [Concomitant]
     Active Substance: CYCLOSPORINE
     Indication: PROPHYLAXIS AGAINST TRANSPLANT REJECTION
     Dosage: 150 MG
     Route: 048
     Dates: start: 2014, end: 20201213

REACTIONS (6)
  - Haematuria [Recovered/Resolved]
  - Blood loss anaemia [Recovering/Resolving]
  - Melaena [Recovered/Resolved]
  - International normalised ratio increased [Recovered/Resolved]
  - Haematemesis [Recovered/Resolved]
  - Labelled drug-drug interaction issue [Recovered/Resolved]

NARRATIVE: CASE EVENT DATE: 20201207
